FAERS Safety Report 24838567 (Version 2)
Quarter: 2025Q3

REPORT INFORMATION
  Report Type: Spontaneous
  Country: EU (occurrence: EU)
  Receive Date: 20250113
  Receipt Date: 20250803
  Transmission Date: 20251020
  Serious: Yes (Other)
  Sender: ALEXION PHARMACEUTICALS
  Company Number: EU-ASTRAZENECA-202501GLO008359FR

PATIENT
  Age: 72 Year
  Sex: Female
  Weight: 98.9 kg

DRUGS (12)
  1. QUETIAPINE FUMARATE [Suspect]
     Active Substance: QUETIAPINE FUMARATE
     Indication: Bipolar disorder
     Dosage: 50 MILLIGRAM, QD
     Dates: start: 20241127, end: 20241127
  2. CARBAMAZEPINE [Suspect]
     Active Substance: CARBAMAZEPINE
     Indication: Bipolar disorder
     Dates: start: 20241126, end: 20241126
  3. ENOXAPARIN SODIUM [Concomitant]
     Active Substance: ENOXAPARIN SODIUM
     Route: 065
  4. KETOPROFEN [Concomitant]
     Active Substance: KETOPROFEN
     Route: 065
     Dates: start: 20241126, end: 20241128
  5. PANTOPRAZOLE [Concomitant]
     Active Substance: PANTOPRAZOLE
     Route: 065
     Dates: start: 20241125, end: 20241128
  6. ROSUVASTATIN [Concomitant]
     Active Substance: ROSUVASTATIN
     Route: 065
  7. VENLAFAXINE [Concomitant]
     Active Substance: VENLAFAXINE HYDROCHLORIDE
  8. TRAMADOL HYDROCHLORIDE [Suspect]
     Active Substance: TRAMADOL HYDROCHLORIDE
  9. RAMIPRIL [Suspect]
     Active Substance: RAMIPRIL
  10. LERCANIDIPINE HYDROCHLORIDE [Concomitant]
     Active Substance: LERCANIDIPINE HYDROCHLORIDE
  11. ALPRAZOLAM [Concomitant]
     Active Substance: ALPRAZOLAM
  12. CARBAMAZEPINE [Concomitant]
     Active Substance: CARBAMAZEPINE

REACTIONS (5)
  - Hypotension [Recovered/Resolved]
  - Fall [Recovered/Resolved]
  - Altered state of consciousness [Recovered/Resolved]
  - Discomfort [Unknown]
  - Overdose [Unknown]

NARRATIVE: CASE EVENT DATE: 20241128
